FAERS Safety Report 7200490-5 (Version None)
Quarter: 2010Q4

REPORT INFORMATION
  Report Type: 
  Country: None (occurrence: None)
  Receive Date: 20101215
  Receipt Date: 20101129
  Transmission Date: 20110411
  Serious: No
  Sender: FDA-Public Use
  Company Number: 2010-01029

PATIENT
  Age: 40 Year
  Sex: Female
  Weight: 99.7913 kg

DRUGS (5)
  1. ZICAM COLD REMEDY RAPIDMELTS WITH VITAMIN C [Suspect]
     Dosage: 1 DOSE
     Dates: start: 20100301, end: 20100301
  2. METFORMIN [Concomitant]
  3. JANUVIA [Concomitant]
  4. HYZAAR [Concomitant]
  5. ZOCOR [Concomitant]

REACTIONS (2)
  - AGEUSIA [None]
  - ANOSMIA [None]
